FAERS Safety Report 8581189-X (Version None)
Quarter: 2012Q3

REPORT INFORMATION
  Report Type: 
  Country: None (occurrence: None)
  Receive Date: 20120809
  Receipt Date: 20120731
  Transmission Date: 20120928
  Serious: Yes (Other)
  Sender: FDA-Public Use
  Company Number: US-BAYER-2012-078631

PATIENT
  Age: 24 Year
  Sex: Female
  Weight: 62.132 kg

DRUGS (15)
  1. FLUTICASONE PROPIONATE [Concomitant]
     Dosage: 50 ?G, UNK
     Route: 045
     Dates: start: 20110823
  2. LEVOXYL [Concomitant]
     Dosage: 125 MCG, 1 TABLET DAILY
     Route: 048
  3. TYLENOL W/ CODEINE NO. 3 [Concomitant]
  4. ALPRAZOLAM [Concomitant]
     Dosage: 1 MG, 1 TABLET TWICE DAILY AS NEEDED
     Route: 048
     Dates: start: 20110823
  5. ANTIPYRINE W/BENZOCAINE [Concomitant]
     Dosage: 5.4-1.4% OTIC
     Dates: start: 20110823
  6. YAZ [Suspect]
  7. RELPAX [Concomitant]
     Indication: MIGRAINE
     Dosage: 40 MG, 2 DOSES IN 24 HOURS
     Route: 048
     Dates: start: 20110823
  8. ACETAMINOPHEN W/ CODEINE [Concomitant]
     Indication: PAIN
     Dosage: 300-30 MG, 1 TABLET EVERY 6 HOURS AS NEEDED
     Route: 048
     Dates: start: 20110823
  9. TYLENOL [Concomitant]
  10. TOPIRAMATE [Concomitant]
     Dosage: 50 MG, TAKE 3 BEDTIME
     Route: 048
  11. IBUPROFEN [Concomitant]
  12. DOXYCYCLINE HYCLATE [Concomitant]
     Dosage: 100 MG, UNK
     Route: 048
     Dates: start: 20110823
  13. ZOLPIDEM TARTRATE [Concomitant]
     Dosage: 10 MG, HS
     Dates: start: 20110823
  14. DROSPIRENONE AND ETHINYL ESTRADIOL [Suspect]
  15. PREDNISONE TAB [Concomitant]
     Dosage: 5 MG, UNK
     Route: 048
     Dates: start: 20110823

REACTIONS (1)
  - DEEP VEIN THROMBOSIS [None]
